FAERS Safety Report 5221764-3 (Version None)
Quarter: 2007Q1

REPORT INFORMATION
  Report Type: 
  Country: None (occurrence: None)
  Receive Date: 20070129
  Receipt Date: 20070122
  Transmission Date: 20070707
  Serious: Yes (Other)
  Sender: FDA-Public Use
  Company Number: US-AVENTIS-200611421US

PATIENT
  Sex: Female
  Weight: 77.11 kg

DRUGS (21)
  1. LANTUS [Suspect]
     Indication: DIABETES MELLITUS NON-INSULIN-DEPENDENT
     Dates: start: 20040901
  2. OPTICLIK (INSULIN INJECTION PEN) [Suspect]
     Dates: start: 20040101
  3. NOVOLOG [Suspect]
  4. ACTOS [Concomitant]
     Dosage: DOSE: UNK
  5. HYDROCODONE BITARTRATE [Concomitant]
     Dosage: DOSE: UNK
  6. LISINOPRIL [Concomitant]
     Dosage: DOSE: UNK
  7. PREMARIN [Concomitant]
     Dosage: DOSE: UNK
  8. AMITRIPTYLINE HCL [Concomitant]
     Dosage: DOSE: UNK
  9. GABAPENTIN [Concomitant]
     Dosage: DOSE: UNK
  10. QUININE SULFATE [Concomitant]
     Dosage: DOSE: UNK
  11. ZANTAC [Concomitant]
     Dosage: DOSE: UNK
  12. SOMA [Concomitant]
     Dosage: DOSE: UNK
  13. NASACORT [Concomitant]
     Dosage: DOSE: UNK
  14. VICODIN [Concomitant]
     Dosage: DOSE: UNK
  15. LIDODERM [Concomitant]
     Dosage: DOSE: 5%
  16. CENTRUM SILVER                     /01292501/ [Concomitant]
     Dosage: DOSE: UNK
  17. ASCORBIC ACID [Concomitant]
     Dosage: DOSE: UNK
  18. CALCIUM MAGNESIUM ZINC [Concomitant]
     Dosage: DOSE: UNK
  19. LABETALOL HCL [Concomitant]
     Dosage: DOSE: UNK
     Dates: end: 20061001
  20. EYE DROPS [Concomitant]
     Dosage: DOSE: UNK
  21. NASONEX [Concomitant]

REACTIONS (14)
  - BALANCE DISORDER [None]
  - BLEPHARITIS [None]
  - BLOOD GLUCOSE DECREASED [None]
  - BLOOD GLUCOSE INCREASED [None]
  - DEVICE FAILURE [None]
  - DRY EYE [None]
  - EYE INFECTION [None]
  - FATIGUE [None]
  - GAIT DISTURBANCE [None]
  - GASTROINTESTINAL DISORDER [None]
  - HYPERHIDROSIS [None]
  - HYPOGLYCAEMIA [None]
  - HYPOTENSION [None]
  - LOSS OF CONSCIOUSNESS [None]
